APPROVED DRUG PRODUCT: TRIDERM
Active Ingredient: TRIAMCINOLONE ACETONIDE
Strength: 0.5%
Dosage Form/Route: CREAM;TOPICAL
Application: A088042 | Product #003 | TE Code: AT
Applicant: CROWN LABORATORIES INC
Approved: Mar 25, 2015 | RLD: No | RS: No | Type: RX